FAERS Safety Report 5341027-5 (Version None)
Quarter: 2007Q2

REPORT INFORMATION
  Report Type: 
  Country: None (occurrence: None)
  Receive Date: 20070405
  Receipt Date: 20070125
  Transmission Date: 20071010
  Serious: No
  Sender: FDA-Public Use
  Company Number: US200701005288

PATIENT
  Age: 40 Year
  Sex: Male

DRUGS (4)
  1. CYMBALTA [Suspect]
     Indication: BACK PAIN
     Dosage: 30 MG, DAILY (1/D)
     Dates: start: 20070122
  2. ANDROGEL [Concomitant]
  3. HYTRIN [Concomitant]
  4. NEXIUM [Concomitant]

REACTIONS (2)
  - PAIN [None]
  - URINE FLOW DECREASED [None]
